FAERS Safety Report 5969543-3 (Version None)
Quarter: 2008Q4

REPORT INFORMATION
  Report Type: 
  Country: None (occurrence: None)
  Receive Date: 20081126
  Receipt Date: 20081118
  Transmission Date: 20090506
  Serious: Yes (Death, Other)
  Sender: FDA-Public Use
  Company Number: US-PFIZER INC-2008062791

PATIENT
  Sex: Male

DRUGS (1)
  1. DILANTIN [Suspect]

REACTIONS (22)
  - ANAEMIA MACROCYTIC [None]
  - ATELECTASIS [None]
  - CHRONIC OBSTRUCTIVE PULMONARY DISEASE [None]
  - CONVULSION [None]
  - DERMATITIS BULLOUS [None]
  - DYSPHAGIA [None]
  - HEADACHE [None]
  - HYPONATRAEMIA [None]
  - LARYNGEAL CANCER [None]
  - LYMPHADENOPATHY [None]
  - METASTASIS [None]
  - NEUTROPENIA [None]
  - NEUTROPHILIA [None]
  - OESOPHAGEAL CARCINOMA [None]
  - PANCYTOPENIA [None]
  - PNEUMONIA [None]
  - RESPIRATORY ARREST [None]
  - RIGHT ATRIAL DILATATION [None]
  - SINUSITIS [None]
  - SKIN LACERATION [None]
  - SQUAMOUS CELL CARCINOMA [None]
  - WEIGHT DECREASED [None]
